FAERS Safety Report 6050674-7 (Version None)
Quarter: 2009Q1

REPORT INFORMATION
  Report Type: 
  Country: None (occurrence: None)
  Receive Date: 20090121
  Receipt Date: 20090105
  Transmission Date: 20090719
  Serious: Yes (Other)
  Sender: FDA-Public Use
  Company Number: 2009S1000145

PATIENT
  Age: 2 Year
  Sex: Male

DRUGS (2)
  1. ACYCLOVIR [Suspect]
     Indication: ENCEPHALITIS VIRAL
     Dosage: 245 MG;3 TIMES A DAY; INTRAVENOUS
     Route: 042
     Dates: start: 20081002, end: 20081030
  2. FERROUS FUMARATE [Concomitant]

REACTIONS (1)
  - NEUTROPENIA [None]
